FAERS Safety Report 4635573-7 (Version None)
Quarter: 2005Q2

REPORT INFORMATION
  Report Type: 
  Country: None (occurrence: None)
  Receive Date: 20050413
  Receipt Date: 20050406
  Transmission Date: 20051028
  Serious: Yes (Other)
  Sender: FDA-Public Use
  Company Number: 200510175BCA

PATIENT
  Age: 57 Year
  Sex: Male

DRUGS (10)
  1. ASPIRIN [Suspect]
     Dosage: 160 MG, TOTAL DAILY
  2. ENOXAPARIN SODIUM [Suspect]
     Dosage: 150 MG, TOTAL DAILY, SUBCUTANEOUS
     Route: 058
  3. REOPRO [Suspect]
     Dosage: 22 MG, TOTAL DAILY, INTRAVENOUS
     Route: 042
  4. TNKASE [Suspect]
     Dosage: 50 MG, TOTAL DAILY, INTRAVENOUS
     Route: 042
  5. METOPROLOL TARTRATE [Concomitant]
  6. MORPHINE [Concomitant]
  7. NITROGLYCERIN [Concomitant]
  8. XYLOCAINE [Concomitant]
  9. CLOPIDOGREL [Concomitant]
  10. ALTACE [Concomitant]

REACTIONS (1)
  - THROMBOSIS [None]
